FAERS Safety Report 8258497-5 (Version None)
Quarter: 2012Q2

REPORT INFORMATION
  Report Type: 
  Country: None (occurrence: None)
  Receive Date: 20120404
  Receipt Date: 20120330
  Transmission Date: 20120825
  Serious: Yes (Hospitalization)
  Sender: FDA-Public Use
  Company Number: US-PFIZER INC-2012050996

PATIENT
  Sex: Female

DRUGS (5)
  1. DARVON [Suspect]
     Dosage: UNK
  2. STADOL [Suspect]
     Dosage: UNK
  3. DURICEF [Suspect]
     Dosage: UNK
  4. MORPHINE SULFATE [Suspect]
     Dosage: UNK
  5. OPANA [Suspect]
     Dosage: UNK

REACTIONS (2)
  - MENTAL DISORDER [None]
  - DRUG HYPERSENSITIVITY [None]
